FAERS Safety Report 17235420 (Version 1)
Quarter: 2020Q1

REPORT INFORMATION
  Report Type: Spontaneous
  Country: ES (occurrence: ES)
  Receive Date: 20200106
  Receipt Date: 20200106
  Transmission Date: 20200409
  Serious: Yes (Hospitalization)
  Sender: FDA-Public Use
  Company Number: ES-TEVA-2019-ES-1162933

PATIENT
  Age: 71 Year
  Sex: Female

DRUGS (3)
  1. ALPRAZOLAM. [Suspect]
     Active Substance: ALPRAZOLAM
     Indication: ANXIETY DISORDER
     Dosage: NIGHT TIME; RECEIVING FOR MORE THAN 3 YEARS
     Route: 065
  2. ENALAPRIL [Concomitant]
     Active Substance: ENALAPRIL
     Indication: HYPERTENSION
     Dosage: 5 MILLIGRAM DAILY; RECEIVING FOR MORE THAN 3 YEARS
     Route: 065
  3. SERTRALINE [Suspect]
     Active Substance: SERTRALINE HYDROCHLORIDE
     Indication: PERSISTENT DEPRESSIVE DISORDER
     Dosage: 50 MILLIGRAM DAILY; RECEIVING FOR MORE THAN 3 YEARS
     Route: 065

REACTIONS (1)
  - Torticollis [Recovering/Resolving]
